FAERS Safety Report 5426377-6 (Version None)
Quarter: 2007Q3

REPORT INFORMATION
  Report Type: 
  Country: None (occurrence: None)
  Receive Date: 20070827
  Receipt Date: 20070815
  Transmission Date: 20080115
  Serious: Yes (Death, Other)
  Sender: FDA-Public Use
  Company Number: US-PFIZER INC-2007050680

PATIENT
  Sex: Male
  Weight: 81.6 kg

DRUGS (2)
  1. CELEBREX [Suspect]
     Indication: ARTHRITIS
     Route: 048
     Dates: start: 19990101, end: 20040718
  2. CELEBREX [Suspect]
     Indication: NEUROPATHY

REACTIONS (6)
  - CEREBROVASCULAR ACCIDENT [None]
  - GASTROOESOPHAGEAL REFLUX DISEASE [None]
  - HEART INJURY [None]
  - MYOCARDIAL INFARCTION [None]
  - RENAL FAILURE [None]
  - VASCULAR INJURY [None]
